FAERS Safety Report 8870058 (Version 1)
Quarter: 2012Q4

REPORT INFORMATION
  Report Type: 
  Country: US (occurrence: US)
  Receive Date: 20121026
  Receipt Date: 20121026
  Transmission Date: 20130627
  Serious: No
  Sender: FDA-Public Use
  Company Number: US-AMGEN-USASP2012043816

PATIENT
  Age: 48 Year
  Sex: Male
  Weight: 78.01 kg

DRUGS (2)
  1. ENBREL [Suspect]
     Indication: PRODUCT USED FOR UNKNOWN INDICATION
     Dosage: 25 mg, q2wk
     Route: 058
  2. IBUPROFEN [Concomitant]
     Dosage: 200 mg, UNK

REACTIONS (1)
  - Staphylococcal infection [Unknown]
